FAERS Safety Report 9135766 (Version 1)
Quarter: 2013Q1

REPORT INFORMATION
  Report Type: Spontaneous
  Country: DE (occurrence: None)
  Receive Date: 20130226
  Receipt Date: 20130226
  Transmission Date: 20140127
  Serious: Yes (Death, Congenital Anomaly, Other)
  Sender: FDA-Public Use
  Company Number: GER/GER/13/0028179

PATIENT
  Sex: Female
  Weight: 3.14 kg

DRUGS (2)
  1. VENLAFAXINE [Suspect]
     Indication: PRODUCT USED FOR UNKNOWN INDICATION
     Route: 064
     Dates: start: 201108
  2. FOLSAURE (FOLIC ACID) [Concomitant]

REACTIONS (9)
  - Stillbirth [None]
  - Coarctation of the aorta [None]
  - Cardiac failure [None]
  - Caesarean section [None]
  - Postmature baby [None]
  - Neonatal hypoxia [None]
  - Patent ductus arteriosus [None]
  - Atrial septal defect [None]
  - Foetal exposure during pregnancy [None]
